FAERS Safety Report 5663440-9 (Version None)
Quarter: 2008Q1

REPORT INFORMATION
  Report Type: 
  Country: None (occurrence: None)
  Receive Date: 20080310
  Receipt Date: 20080221
  Transmission Date: 20080703
  Serious: Yes (Hospitalization)
  Sender: FDA-Public Use
  Company Number: 2008JP000968

PATIENT
  Age: 33 Year
  Sex: Female

DRUGS (2)
  1. TACROLIMUS [Suspect]
     Indication: LUPUS NEPHRITIS
     Dosage: 2 MG, D, ORAL
     Route: 048
  2. PREDNISOLONE [Suspect]
     Dosage: 17.5 MG, D, ORAL
     Route: 048

REACTIONS (1)
  - ALTERED STATE OF CONSCIOUSNESS [None]
